FAERS Safety Report 11696455 (Version 1)
Quarter: 2015Q4

REPORT INFORMATION
  Report Type: Report from Study
  Country: US (occurrence: US)
  Receive Date: 20151104
  Receipt Date: 20151104
  Transmission Date: 20160304
  Serious: Yes (Hospitalization)
  Sender: FDA-Public Use
  Company Number: US-BIOGENIDEC-2015BI146571

PATIENT
  Age: 50 Year
  Sex: Male

DRUGS (14)
  1. VITAMIN D [Concomitant]
     Active Substance: CHOLECALCIFEROL
  2. NYSTATIN. [Concomitant]
     Active Substance: NYSTATIN
  3. MACRODANTIN [Concomitant]
     Active Substance: NITROFURANTOIN
  4. BACLOFEN. [Concomitant]
     Active Substance: BACLOFEN
  5. TECFIDERA [Suspect]
     Active Substance: DIMETHYL FUMARATE
     Indication: MULTIPLE SCLEROSIS
     Route: 048
     Dates: start: 201305
  6. BACITRACIN. [Concomitant]
     Active Substance: BACITRACIN
  7. ARIXTRA [Concomitant]
     Active Substance: FONDAPARINUX SODIUM
  8. ZOLOFT [Concomitant]
     Active Substance: SERTRALINE HYDROCHLORIDE
  9. NEXIUM [Concomitant]
     Active Substance: ESOMEPRAZOLE MAGNESIUM
  10. IBUPROFEN. [Concomitant]
     Active Substance: IBUPROFEN
  11. REQUIP [Concomitant]
     Active Substance: ROPINIROLE HYDROCHLORIDE
  12. PREVACID [Concomitant]
     Active Substance: LANSOPRAZOLE
  13. AMANTADINE HCL [Concomitant]
     Active Substance: AMANTADINE HYDROCHLORIDE
  14. TRAMADOL. [Concomitant]
     Active Substance: TRAMADOL

REACTIONS (1)
  - Gallbladder disorder [Unknown]
